FAERS Safety Report 6414040-4 (Version None)
Quarter: 2009Q4

REPORT INFORMATION
  Report Type: 
  Country: None (occurrence: None)
  Receive Date: 20091022
  Receipt Date: 20091022
  Transmission Date: 20100525
  Serious: Yes (Hospitalization)
  Sender: FDA-Public Use
  Company Number: None

PATIENT
  Age: 65 Year
  Sex: Male
  Weight: 93.1688 kg

DRUGS (20)
  1. IXABEPILONE FOR INJECTION 15MG; BRISTOL MYERS SQUIBB [Suspect]
     Indication: COLON CANCER
     Dosage: 40 MG/M2 Q 3 WEEKS IV
     Route: 042
     Dates: start: 20091002
  2. DASATINIB 50MG; BRISTOL MYERS SQUIBB [Suspect]
     Dosage: 150 MG DAILY PO
     Route: 048
     Dates: start: 20091002, end: 20091018
  3. AVALIDE [Concomitant]
  4. FUROSEMIDE [Concomitant]
  5. MINOXIDIL [Concomitant]
  6. NIFEDIPINE [Concomitant]
  7. LISINOPRIL [Concomitant]
  8. ATENOLOL [Concomitant]
  9. VYTORIN [Concomitant]
  10. WELLBUTRIN [Concomitant]
  11. CYMBALTA [Concomitant]
  12. KAPIDEX [Concomitant]
  13. K-DUR [Concomitant]
  14. AMBIEN [Concomitant]
  15. TESTOSTERONE [Concomitant]
  16. PERCOCET [Concomitant]
  17. GABAPENTIN [Concomitant]
  18. MEGACE [Concomitant]
  19. ONDANSETRON [Concomitant]
  20. COMPAZINE [Concomitant]

REACTIONS (1)
  - SMALL INTESTINAL OBSTRUCTION [None]
